FAERS Safety Report 13771724 (Version 2)
Quarter: 2017Q3

REPORT INFORMATION
  Report Type: Spontaneous
  Country: US (occurrence: US)
  Receive Date: 20170720
  Receipt Date: 20170901
  Transmission Date: 20171127
  Serious: No
  Sender: FDA-Public Use
  Company Number: US-PFIZER INC-2017313907

PATIENT
  Age: 62 Year
  Sex: Female
  Weight: 73.94 kg

DRUGS (1)
  1. JUNIOR STRENGTH ADVIL [Suspect]
     Active Substance: IBUPROFEN
     Dosage: 100 MG, SINGLE
     Dates: start: 20170715, end: 20170715

REACTIONS (4)
  - Product taste abnormal [Unknown]
  - Intentional product misuse [Unknown]
  - Throat irritation [Unknown]
  - Dysgeusia [Unknown]

NARRATIVE: CASE EVENT DATE: 20170715
